FAERS Safety Report 23052210 (Version 3)
Quarter: 2025Q3

REPORT INFORMATION
  Report Type: Spontaneous
  Country: CR (occurrence: CR)
  Receive Date: 20231010
  Receipt Date: 20250903
  Transmission Date: 20251021
  Serious: Yes (Life-Threatening, Other)
  Sender: SANDOZ
  Company Number: CR-002147023-NVSC2023CR026865

PATIENT
  Age: 68 Year
  Sex: Female
  Weight: 59 kg

DRUGS (10)
  1. CATAFLAM [Suspect]
     Active Substance: DICLOFENAC POTASSIUM
     Indication: Product used for unknown indication
     Route: 065
  2. FULVESTRANT [Suspect]
     Active Substance: FULVESTRANT
     Indication: Product used for unknown indication
     Route: 030
  3. KISQALI [Suspect]
     Active Substance: RIBOCICLIB SUCCINATE
     Dosage: 2 DOSAGE FORM, QD
     Route: 065
  4. KISQALI [Suspect]
     Active Substance: RIBOCICLIB SUCCINATE
     Dosage: 400 MG, QD
     Route: 048
  5. KISQALI [Suspect]
     Active Substance: RIBOCICLIB SUCCINATE
     Indication: Breast cancer
     Dosage: 600 MG, QD
     Route: 048
     Dates: start: 20221111
  6. KISQALI [Suspect]
     Active Substance: RIBOCICLIB SUCCINATE
     Indication: Breast cancer metastatic
     Dosage: 600 MG, QD
     Route: 048
     Dates: start: 20221125
  7. KISQALI [Suspect]
     Active Substance: RIBOCICLIB SUCCINATE
     Dosage: 600 MG, QD
     Route: 048
     Dates: start: 20221221
  8. KISQALI [Suspect]
     Active Substance: RIBOCICLIB SUCCINATE
     Dosage: 600 MG, QD
     Route: 048
     Dates: start: 202212
  9. ZOMETA [Suspect]
     Active Substance: ZOLEDRONIC ACID
     Indication: Bone cancer
     Dosage: UNK UNK, Q3MO
     Route: 065
  10. INSULIN NOS [Concomitant]
     Active Substance: INSULIN NOS
     Indication: Diabetes mellitus
     Route: 065

REACTIONS (69)
  - Blister [Unknown]
  - Hypersensitivity [Unknown]
  - Diabetes mellitus [Not Recovered/Not Resolved]
  - Choking [Unknown]
  - Spinal fracture [Unknown]
  - Renal failure [Unknown]
  - Food intolerance [Unknown]
  - Hypoglycaemia [Recovered/Resolved]
  - Discomfort [Unknown]
  - Breath odour [Unknown]
  - Anonychia [Unknown]
  - Skin disorder [Unknown]
  - Ageusia [Unknown]
  - Saliva altered [Unknown]
  - Oropharyngeal discomfort [Unknown]
  - Dysphonia [Unknown]
  - Mass [Unknown]
  - Facial pain [Unknown]
  - Thyroid disorder [Unknown]
  - Drug intolerance [Unknown]
  - Blood glucose decreased [Unknown]
  - Blood triglycerides decreased [Unknown]
  - Blood cholesterol decreased [Unknown]
  - Influenza [Recovering/Resolving]
  - Vaginal discharge [Unknown]
  - Tachycardia [Unknown]
  - Haemorrhoids [Unknown]
  - Chromaturia [Unknown]
  - Agitation [Unknown]
  - Ligament sprain [Recovering/Resolving]
  - Fall [Unknown]
  - Inflammation [Unknown]
  - Limb injury [Recovering/Resolving]
  - Upper limb fracture [Unknown]
  - Feeling cold [Not Recovered/Not Resolved]
  - Nasopharyngitis [Recovering/Resolving]
  - Weight decreased [Unknown]
  - Pain [Recovering/Resolving]
  - Bone pain [Unknown]
  - Alopecia [Unknown]
  - Pain in extremity [Unknown]
  - Insomnia [Unknown]
  - Malaise [Unknown]
  - Oedema peripheral [Not Recovered/Not Resolved]
  - Productive cough [Recovering/Resolving]
  - Dysgeusia [Unknown]
  - Pruritus [Unknown]
  - Decreased appetite [Unknown]
  - Erythema [Unknown]
  - Pyrexia [Unknown]
  - Dry skin [Unknown]
  - Vomiting [Unknown]
  - Diarrhoea [Recovering/Resolving]
  - Dyspepsia [Recovering/Resolving]
  - Tremor [Unknown]
  - Asthenia [Unknown]
  - Depression [Unknown]
  - Dizziness [Unknown]
  - Headache [Unknown]
  - Back pain [Unknown]
  - Dyspnoea [Unknown]
  - Obstructive airways disorder [Recovered/Resolved]
  - Chest discomfort [Recovering/Resolving]
  - Oropharyngeal pain [Recovering/Resolving]
  - Onychoclasis [Unknown]
  - Lymphadenopathy [Recovered/Resolved]
  - Suffocation feeling [Unknown]
  - Illness [Unknown]
  - Inappropriate schedule of product administration [Unknown]

NARRATIVE: CASE EVENT DATE: 20221111
